FAERS Safety Report 13363983 (Version 2)
Quarter: 2017Q2

REPORT INFORMATION
  Report Type: Report from Study
  Country: MY (occurrence: MY)
  Receive Date: 20170323
  Receipt Date: 20170419
  Transmission Date: 20170830
  Serious: Yes (Hospitalization, Other)
  Sender: FDA-Public Use
  Company Number: PHHY2016MY174576

PATIENT
  Age: 4 Year
  Sex: Female

DRUGS (1)
  1. EXJADE [Suspect]
     Active Substance: DEFERASIROX
     Indication: THALASSAEMIA
     Dosage: 500 MG ALTERNATE WITH 625 MG, QD
     Route: 048
     Dates: start: 2014

REACTIONS (13)
  - Pyrexia [Recovered/Resolved]
  - Vomiting [Recovered/Resolved]
  - Chromaturia [Unknown]
  - Inappropriate schedule of drug administration [Unknown]
  - Blood glucose decreased [Recovered/Resolved]
  - Influenza [Unknown]
  - Blood iron increased [Unknown]
  - Skin discolouration [Unknown]
  - Faeces discoloured [Unknown]
  - Serum ferritin increased [Unknown]
  - Weight decreased [Unknown]
  - Dehydration [Recovered/Resolved]
  - Blood iron decreased [Unknown]

NARRATIVE: CASE EVENT DATE: 20161231
